FAERS Safety Report 14978280 (Version 1)
Quarter: 2018Q2

REPORT INFORMATION
  Report Type: Spontaneous
  Country: DE (occurrence: DE)
  Receive Date: 20180606
  Receipt Date: 20180606
  Transmission Date: 20180711
  Serious: Yes (Other)
  Sender: FDA-Public Use
  Company Number: DE-TEVA-2018-DE-901870

PATIENT
  Age: 40 Year
  Sex: Male

DRUGS (1)
  1. COTRIM FORTE-RATIOPHARM 960 MG TABLETTEN [Suspect]
     Active Substance: SULFAMETHOXAZOLE\TRIMETHOPRIM
     Dosage: 1 DF = 800 MG SULFAMETHOXAZOLE + 160 MG TRIMETHOPRIM; USED THE FIRST TIME
     Route: 048

REACTIONS (1)
  - Anaphylactic shock [Recovered/Resolved]
